FAERS Safety Report 7115973-6 (Version None)
Quarter: 2010Q4

REPORT INFORMATION
  Report Type: 
  Country: None (occurrence: None)
  Receive Date: 20101122
  Receipt Date: 20101110
  Transmission Date: 20110411
  Serious: Yes (Hospitalization)
  Sender: FDA-Public Use
  Company Number: GB-JNJFOC-20101000852

PATIENT
  Sex: Female
  Weight: 40.2 kg

DRUGS (8)
  1. REMICADE [Suspect]
     Indication: CROHN'S DISEASE
     Route: 042
  2. HUMIRA [Suspect]
     Indication: CROHN'S DISEASE
  3. AZATHIOPRINE [Suspect]
     Indication: CROHN'S DISEASE
  4. ANTIBIOTICS NOS [Concomitant]
     Indication: CROHN'S DISEASE
  5. ONDANSETRON [Concomitant]
  6. ACETAMINOPHEN [Concomitant]
  7. VITAMIN D [Concomitant]
  8. OMEPRAZOLE [Concomitant]

REACTIONS (1)
  - CLOSTRIDIAL INFECTION [None]
